FAERS Safety Report 6386721-2 (Version None)
Quarter: 2009Q4

REPORT INFORMATION
  Report Type: 
  Country: None (occurrence: None)
  Receive Date: 20091002
  Receipt Date: 20090922
  Transmission Date: 20100525
  Serious: Yes (Hospitalization)
  Sender: FDA-Public Use
  Company Number: KR-JNJFOC-20090901305

PATIENT
  Age: 71 Year
  Sex: Female
  Weight: 50 kg

DRUGS (11)
  1. REMICADE [Suspect]
     Dosage: 4TH INFUSION
     Route: 042
  2. REMICADE [Suspect]
     Dosage: 3RD INFUSION
     Route: 042
  3. REMICADE [Suspect]
     Route: 042
  4. REMICADE [Suspect]
     Indication: RHEUMATOID ARTHRITIS
     Route: 042
  5. FOLIC ACID [Concomitant]
     Indication: DRUG TOXICITY PROPHYLAXIS
  6. METHOTREXATE [Concomitant]
     Indication: RHEUMATOID ARTHRITIS
     Route: 048
  7. SOLONDO [Concomitant]
     Indication: RHEUMATOID ARTHRITIS
     Route: 048
  8. AMLODIPINE [Concomitant]
     Indication: HYPERTENSION
     Route: 048
  9. ATACAND [Concomitant]
     Indication: HYPERTENSION
     Route: 048
  10. LEGALON [Concomitant]
     Route: 048
  11. REBAMIPIDE [Concomitant]

REACTIONS (2)
  - HEPATIC ENZYME INCREASED [None]
  - PULMONARY TUBERCULOSIS [None]
